FAERS Safety Report 5944379-8 (Version None)
Quarter: 2008Q4

REPORT INFORMATION
  Report Type: 
  Country: None (occurrence: None)
  Receive Date: 20081106
  Receipt Date: 20081106
  Transmission Date: 20090506
  Serious: Yes (Death, Hospitalization)
  Sender: FDA-Public Use
  Company Number: None

PATIENT
  Sex: Male
  Weight: 76 kg

DRUGS (3)
  1. CYTARABINE [Suspect]
     Dosage: 1288 MG
     Dates: start: 20080904, end: 20080910
  2. DAUNORUBICIN HCL [Suspect]
     Dosage: 495 MG
     Dates: end: 20080906
  3. ETOPOSIDE [Suspect]
     Dosage: 540 MG
     Dates: end: 20080910

REACTIONS (23)
  - ASPERGILLOSIS [None]
  - ATELECTASIS [None]
  - BLOOD GLUCOSE DECREASED [None]
  - CARDIAC FAILURE CONGESTIVE [None]
  - CENTRAL LINE INFECTION [None]
  - CEREBRAL HAEMORRHAGE [None]
  - CONDITION AGGRAVATED [None]
  - CONVULSION [None]
  - EJECTION FRACTION DECREASED [None]
  - ENTEROCOCCAL INFECTION [None]
  - INCONTINENCE [None]
  - LUNG NEOPLASM [None]
  - METABOLIC ENCEPHALOPATHY [None]
  - MYOCARDIAL ISCHAEMIA [None]
  - PEPTOSTREPTOCOCCUS INFECTION [None]
  - PLEURAL EFFUSION [None]
  - PNEUMONIA [None]
  - PULMONARY HYPERTENSION [None]
  - SINUS DISORDER [None]
  - TOXIC ENCEPHALOPATHY [None]
  - UNRESPONSIVE TO STIMULI [None]
  - URINARY TRACT INFECTION ENTEROCOCCAL [None]
  - VENTRICULAR HYPOKINESIA [None]
